FAERS Safety Report 23698377 (Version 1)
Quarter: 2024Q2

REPORT INFORMATION
  Report Type: Spontaneous
  Country: FR (occurrence: FR)
  Receive Date: 20240402
  Receipt Date: 20240402
  Transmission Date: 20240716
  Serious: Yes (Hospitalization, Other)
  Sender: FDA-Public Use
  Company Number: None

PATIENT
  Age: 2 Year
  Sex: Female
  Weight: 12.6 kg

DRUGS (16)
  1. ALBUMIN HUMAN [Suspect]
     Active Substance: ALBUMIN HUMAN
     Indication: Hypogammaglobulinaemia
     Dosage: 13.000G
     Route: 042
     Dates: start: 20240226, end: 20240226
  2. ALFACALCIDOL [Suspect]
     Active Substance: ALFACALCIDOL
     Indication: Vitamin supplementation
     Dosage: 0.200UG QD
     Route: 048
     Dates: start: 20240227, end: 20240228
  3. CEFOTAXIME [Suspect]
     Active Substance: CEFOTAXIME SODIUM
     Indication: Pyelonephritis
     Dosage: 1260.000MG QD
     Route: 042
     Dates: start: 20240222, end: 20240302
  4. DEXAMETHASONE [Suspect]
     Active Substance: DEXAMETHASONE
     Indication: Acute lymphocytic leukaemia
     Dosage: 3.200MG QD
     Route: 042
     Dates: start: 20240223, end: 20240229
  5. FUROSEMIDE [Suspect]
     Active Substance: FUROSEMIDE
     Indication: Polyuria
     Dosage: 25.000MG QD
     Route: 042
     Dates: start: 20240220, end: 20240227
  6. FASTURTEC [Suspect]
     Active Substance: RASBURICASE
     Indication: Prophylaxis
     Dosage: 2.500MG QD
     Route: 042
     Dates: start: 20240222, end: 20240225
  7. MORPHINE [Suspect]
     Active Substance: MORPHINE
     Indication: Pain
     Dosage: 30.000MG QD
     Route: 042
     Dates: start: 20240222, end: 20240305
  8. NALBUPHINE [Suspect]
     Active Substance: NALBUPHINE
     Dosage: 2.500MG QD
     Route: 042
     Dates: start: 20240220, end: 20240220
  9. NALBUPHINE [Suspect]
     Active Substance: NALBUPHINE
     Indication: Pain
     Dosage: 3.000MG QD
     Route: 042
     Dates: start: 20240223, end: 20240304
  10. ACETAMINOPHEN [Suspect]
     Active Substance: ACETAMINOPHEN
     Indication: Pain
     Dosage: SI BESOIN
     Route: 042
     Dates: start: 20240220, end: 20240229
  11. CHOLECALCIFEROL [Suspect]
     Active Substance: CHOLECALCIFEROL
     Indication: Vitamin supplementation
     Dosage: 30000.000DF QD
     Route: 048
     Dates: start: 20240226, end: 20240228
  12. SODIUM CHLORIDE [Concomitant]
     Active Substance: SODIUM CHLORIDE
     Indication: Product used for unknown indication
     Dosage: VARIABLE
     Route: 042
     Dates: start: 20240220, end: 20240229
  13. DEXTROSE [Concomitant]
     Active Substance: DEXTROSE\DEXTROSE MONOHYDRATE
     Indication: Product used for unknown indication
     Dosage: 1.000DF
     Route: 042
     Dates: start: 20240220
  14. METHOTREXATE [Concomitant]
     Active Substance: METHOTREXATE
     Indication: Product used for unknown indication
     Dosage: 10.000MG
     Route: 037
     Dates: start: 20240223, end: 20240223
  15. VINCRISTINE SULFATE [Concomitant]
     Active Substance: VINCRISTINE SULFATE
     Indication: Product used for unknown indication
     Dosage: 0.800MG
     Route: 042
     Dates: start: 20240223
  16. VITAMIN K [Concomitant]
     Active Substance: PHYTONADIONE
     Indication: Product used for unknown indication
     Dosage: 10.000MG QD
     Route: 042
     Dates: start: 20240226, end: 20240228

REACTIONS (1)
  - Pancreatitis acute [Recovered/Resolved]

NARRATIVE: CASE EVENT DATE: 20240229
